FAERS Safety Report 20832644 (Version 2)
Quarter: 2023Q2

REPORT INFORMATION
  Report Type: Spontaneous
  Country: US (occurrence: US)
  Receive Date: 20220516
  Receipt Date: 20230420
  Transmission Date: 20230722
  Serious: No
  Sender: FDA-Public Use
  Company Number: US-Blueprint Medicines Corporation-104

PATIENT
  Sex: Female

DRUGS (2)
  1. AYVAKIT [Suspect]
     Active Substance: AVAPRITINIB
     Indication: Systemic mastocytosis
     Route: 048
     Dates: start: 20210909
  2. AYVAKIT [Suspect]
     Active Substance: AVAPRITINIB
     Route: 065
     Dates: start: 20210909

REACTIONS (6)
  - Diarrhoea [Recovering/Resolving]
  - Glassy eyes [Unknown]
  - Ocular icterus [Unknown]
  - Periorbital swelling [Unknown]
  - Swelling face [Recovering/Resolving]
  - Eye swelling [Recovering/Resolving]
